FAERS Safety Report 8068998-0 (Version None)
Quarter: 2011Q4

REPORT INFORMATION
  Report Type: 
  Country: None (occurrence: None)
  Receive Date: 20111221
  Receipt Date: 20110215
  Transmission Date: 20120403
  Serious: Yes (Other)
  Sender: FDA-Public Use
  Company Number: PHHY2011US06154

PATIENT
  Age: 84 Year
  Sex: Male
  Weight: 77.1 kg

DRUGS (7)
  1. TERAZOSIN HYDROCHLORIDE [Concomitant]
  2. TOPROL-XL [Concomitant]
  3. SIMVASTATIN [Concomitant]
  4. AMBIEN (ZOLPIDEN TARTRATE) [Concomitant]
  5. EXJADE [Suspect]
     Indication: IRON OVERLOAD
     Dosage: 1500 MG, DAILY, ORAL
     Route: 048
     Dates: start: 20101110, end: 20110101
  6. EXJADE [Suspect]
     Indication: TRANSFUSION
     Dosage: 1500 MG, DAILY, ORAL
     Route: 048
     Dates: start: 20101110, end: 20110101
  7. CYTOXAN (CYCLOPHOSP0HAMIDE) [Concomitant]

REACTIONS (4)
  - RENAL IMPAIRMENT [None]
  - BLOOD UREA INCREASED [None]
  - CREATININE RENAL CLEARANCE DECREASED [None]
  - BLOOD CREATININE INCREASED [None]
